FAERS Safety Report 7726541-7 (Version None)
Quarter: 2011Q3

REPORT INFORMATION
  Report Type: 
  Country: None (occurrence: None)
  Receive Date: 20110902
  Receipt Date: 20110822
  Transmission Date: 20111222
  Serious: Yes (Other)
  Sender: FDA-Public Use
  Company Number: PHEH2011US01629

PATIENT
  Age: 30 Year
  Sex: Male
  Weight: 77.551 kg

DRUGS (3)
  1. LEXAPRO [Concomitant]
     Indication: ANXIETY
     Dosage: 10 MG, DAILY
     Route: 048
     Dates: start: 20110429
  2. VITAMIN D [Concomitant]
     Dosage: UNK UKN, UNK
     Route: 048
  3. GILENYA [Suspect]
     Dosage: 0.5 MG, UNK
     Route: 048
     Dates: start: 20110303

REACTIONS (3)
  - VERTIGO [None]
  - SYNCOPE [None]
  - HEART RATE DECREASED [None]
